FAERS Safety Report 7024166-2 (Version None)
Quarter: 2010Q4

REPORT INFORMATION
  Report Type: 
  Country: None (occurrence: None)
  Receive Date: 20101001
  Receipt Date: 20100920
  Transmission Date: 20110411
  Serious: Yes (Other)
  Sender: FDA-Public Use
  Company Number: CA-JNJFOC-20100906950

PATIENT
  Sex: Male
  Weight: 90 kg

DRUGS (8)
  1. REMICADE [Suspect]
     Indication: CROHN'S DISEASE
     Dosage: TOTAL OF 46 INFUSIONS ADMINISTERED
     Route: 042
  2. REMICADE [Suspect]
     Route: 042
  3. REMICADE [Suspect]
     Route: 042
  4. IMURAN [Concomitant]
  5. ZOPICLONE [Concomitant]
  6. METOPROLOL TARTRATE [Concomitant]
  7. PERINDOPRIL ERBUMINE [Concomitant]
  8. MICRO-K [Concomitant]

REACTIONS (2)
  - PYREXIA [None]
  - WHEEZING [None]
